FAERS Safety Report 9621253 (Version 2)
Quarter: 2013Q4

REPORT INFORMATION
  Report Type: Report from Study
  Country: US (occurrence: US)
  Receive Date: 20131015
  Receipt Date: 20131111
  Transmission Date: 20140711
  Serious: Yes (Hospitalization, Other)
  Sender: FDA-Public Use
  Company Number: US-JNJFOC-20131004463

PATIENT
  Sex: Male
  Weight: 77.57 kg

DRUGS (12)
  1. REMICADE [Suspect]
     Indication: RHEUMATOID ARTHRITIS
     Dosage: 100MG STRENGTH, 14-15 YEARS AGO
     Route: 042
  2. REMICADE [Suspect]
     Indication: RHEUMATOID ARTHRITIS
     Dosage: 100 MG STRENGTH
     Route: 042
     Dates: end: 2013
  3. REMICADE [Suspect]
     Indication: RHEUMATOID ARTHRITIS
     Route: 042
     Dates: start: 2013
  4. REMICADE [Suspect]
     Indication: CROHN^S DISEASE
     Dosage: 100MG STRENGTH, 14-15 YEARS AGO
     Route: 042
  5. REMICADE [Suspect]
     Indication: CROHN^S DISEASE
     Route: 042
     Dates: start: 2013
  6. REMICADE [Suspect]
     Indication: CROHN^S DISEASE
     Dosage: 100 MG STRENGTH
     Route: 042
     Dates: end: 2013
  7. HUMIRA [Suspect]
     Indication: ARTHRITIS
     Route: 065
  8. HUMIRA [Suspect]
     Indication: CROHN^S DISEASE
     Route: 065
  9. ENBREL [Suspect]
     Indication: ARTHRITIS
     Route: 065
  10. ENBREL [Suspect]
     Indication: CROHN^S DISEASE
     Route: 065
  11. PREDNISONE [Suspect]
     Indication: ARTHRITIS
     Route: 065
     Dates: end: 2013
  12. PREDNISONE [Suspect]
     Indication: CROHN^S DISEASE
     Route: 065
     Dates: end: 2013

REACTIONS (9)
  - Amnesia [Not Recovered/Not Resolved]
  - Weight increased [Unknown]
  - Crohn^s disease [Unknown]
  - Fistula [Not Recovered/Not Resolved]
  - Drug ineffective [Not Recovered/Not Resolved]
  - Malaise [Not Recovered/Not Resolved]
  - Drug effect decreased [Unknown]
  - Abnormal loss of weight [Unknown]
  - Nasopharyngitis [Recovering/Resolving]
